FAERS Safety Report 6372206-6 (Version None)
Quarter: 2009Q3

REPORT INFORMATION
  Report Type: 
  Country: None (occurrence: None)
  Receive Date: 20090924
  Receipt Date: 20090915
  Transmission Date: 20100115
  Serious: Yes (Other)
  Sender: FDA-Public Use
  Company Number: US-BIOGENIDEC-2009BI017187

PATIENT
  Age: 45 Year
  Sex: Female

DRUGS (1)
  1. TYSABRI [Suspect]
     Indication: MULTIPLE SCLEROSIS
     Route: 042
     Dates: start: 20080718

REACTIONS (5)
  - ANAPHYLACTIC SHOCK [None]
  - CHEST DISCOMFORT [None]
  - HEMIPARESIS [None]
  - HYPERSENSITIVITY [None]
  - NARCOLEPSY [None]
